FAERS Safety Report 10257230 (Version 1)
Quarter: 2014Q2

REPORT INFORMATION
  Report Type: Spontaneous
  Country: US (occurrence: None)
  Receive Date: 20140623
  Receipt Date: 20140623
  Transmission Date: 20141212
  Serious: No
  Sender: FDA-Public Use
  Company Number: None

PATIENT
  Age: 52 Year
  Sex: Male
  Weight: 88.45 kg

DRUGS (1)
  1. ESZOPICLONE [Suspect]
     Indication: INSOMNIA
     Dosage: 1 PILL AT BEDTIME AT BEDTIME TAKEN BY MOUTH
     Route: 048
     Dates: start: 20140515, end: 20140619

REACTIONS (3)
  - Drug ineffective [None]
  - Product substitution issue [None]
  - Product quality issue [None]
